FAERS Safety Report 24883546 (Version 1)
Quarter: 2025Q1

REPORT INFORMATION
  Report Type: Spontaneous
  Country: US (occurrence: US)
  Receive Date: 20250124
  Receipt Date: 20250124
  Transmission Date: 20250409
  Serious: Yes (Death, Hospitalization)
  Sender: AMGEN
  Company Number: US-AMGEN-USASP2025011326

PATIENT
  Age: 78 Year
  Sex: Female

DRUGS (2)
  1. BEVACIZUMAB [Suspect]
     Active Substance: BEVACIZUMAB
     Indication: Colorectal cancer metastatic
     Route: 065
  2. ME 344 [Concomitant]
     Indication: Colorectal cancer metastatic
     Route: 040

REACTIONS (3)
  - Sepsis [Fatal]
  - Fall [Unknown]
  - General physical health deterioration [Unknown]
